FAERS Safety Report 6054868-6 (Version None)
Quarter: 2009Q1

REPORT INFORMATION
  Report Type: 
  Country: None (occurrence: None)
  Receive Date: 20090128
  Receipt Date: 20090115
  Transmission Date: 20090719
  Serious: Yes (Hospitalization)
  Sender: FDA-Public Use
  Company Number: PHHY2009GB01909

PATIENT
  Age: 72 Year
  Sex: Female

DRUGS (12)
  1. CARBAMAZEPINE [Suspect]
     Indication: EPILEPSY
     Dosage: 200 MG, TID
     Route: 048
  2. SERETIDE [Suspect]
     Indication: ASTHMA
     Dosage: 2 DF BD
     Dates: start: 20050101
  3. ALENDRONIC ACID [Suspect]
     Indication: OSTEOARTHRITIS
     Dosage: UNK
  4. CALCICHEW [Suspect]
     Indication: OSTEOARTHRITIS
     Dosage: 1 DF OD
     Route: 048
  5. CODEINE PHOSPHATE [Suspect]
     Indication: MIGRAINE
     Dosage: UNK
     Route: 048
  6. GAVISCON [Suspect]
     Dosage: UNK
     Route: 048
  7. PANTOPRAZOLE SODIUM [Suspect]
     Dosage: 20 MG, QD
     Route: 048
  8. RISEDRONATE SODIUM [Suspect]
     Indication: OSTEOARTHRITIS
     Dosage: 35 MG, QD
     Route: 048
  9. THYROXINE [Suspect]
     Indication: HYPOTHYROIDISM
     Dosage: 100 UG, QD
     Route: 048
  10. VENTOLIN [Suspect]
     Indication: ASTHMA
  11. WARFARIN SODIUM [Suspect]
     Indication: DEEP VEIN THROMBOSIS
     Route: 048
  12. ZOLMITRIPTAN [Suspect]
     Indication: MIGRAINE
     Route: 048

REACTIONS (3)
  - CEREBROVASCULAR ACCIDENT [None]
  - COUGH [None]
  - DYSPNOEA [None]
